FAERS Safety Report 17246683 (Version 1)
Quarter: 2020Q1

REPORT INFORMATION
  Report Type: Spontaneous
  Country: US (occurrence: US)
  Receive Date: 20200108
  Receipt Date: 20200108
  Transmission Date: 20200409
  Serious: No
  Sender: FDA-Public Use
  Company Number: US-PFIZER INC-2020004106

PATIENT
  Age: 1 Year
  Sex: Female
  Weight: 8.16 kg

DRUGS (1)
  1. GENOTROPIN [Suspect]
     Active Substance: SOMATROPIN
     Indication: GROWTH HORMONE DEFICIENCY
     Dosage: 0.5 MG, UNK(SIX NIGHTS A WEEK)
     Route: 058
     Dates: start: 201903

REACTIONS (1)
  - Malaise [Unknown]
